FAERS Safety Report 14821699 (Version 1)
Quarter: 2018Q2

REPORT INFORMATION
  Report Type: Spontaneous
  Country: US (occurrence: US)
  Receive Date: 20180427
  Receipt Date: 20180427
  Transmission Date: 20180711
  Serious: No
  Sender: FDA-Public Use
  Company Number: US-GLAXOSMITHKLINE-US2018067015

PATIENT
  Age: 60 Year
  Sex: Female

DRUGS (3)
  1. LORAZEPAM. [Concomitant]
     Active Substance: LORAZEPAM
  2. SHINGRIX [Suspect]
     Active Substance: RECOMBINANT VARICELLA ZOSTER VIRUS (VZV) GLYCOPROTEIN E
     Indication: PROPHYLAXIS
     Dates: start: 20180329, end: 20180329
  3. VALTREX [Suspect]
     Active Substance: VALACYCLOVIR HYDROCHLORIDE
     Indication: HERPES ZOSTER
     Dosage: 1 G, TID
     Dates: start: 20180406

REACTIONS (9)
  - Injection site warmth [Unknown]
  - Pain [Unknown]
  - Injection site swelling [Unknown]
  - Rash [Unknown]
  - Swelling face [Unknown]
  - Injection site erythema [Unknown]
  - Herpes zoster [Recovering/Resolving]
  - Injection site pain [Unknown]
  - Oral discomfort [Unknown]

NARRATIVE: CASE EVENT DATE: 201804
